FAERS Safety Report 24307704 (Version 1)
Quarter: 2024Q3

REPORT INFORMATION
  Report Type: Report from Study
  Country: HR (occurrence: HR)
  Receive Date: 20240911
  Receipt Date: 20240911
  Transmission Date: 20241017
  Serious: Yes (Life-Threatening, Other)
  Sender: PFIZER
  Company Number: HR-PFIZER INC-202400252084

PATIENT
  Age: 2 Year
  Sex: Female

DRUGS (1)
  1. VINCRISTINE SULFATE [Suspect]
     Active Substance: VINCRISTINE SULFATE
     Indication: Nephroblastoma
     Dosage: UNK, CYCLIC (CHEMOTHERAPY DELAY FOR SIX WEEKS AND MODIFICATION)

REACTIONS (1)
  - Venoocclusive liver disease [Recovered/Resolved]
